FAERS Safety Report 11398986 (Version 1)
Quarter: 2015Q3

REPORT INFORMATION
  Report Type: Spontaneous
  Country: US (occurrence: None)
  Receive Date: 20150806
  Receipt Date: 20150806
  Transmission Date: 20151125
  Serious: Yes (Hospitalization)
  Sender: FDA-Public Use
  Company Number: POI0581201400010

PATIENT
  Age: 43 Year
  Sex: Male

DRUGS (1)
  1. AZASAN [Suspect]
     Active Substance: AZATHIOPRINE
     Indication: CROHN^S DISEASE
     Route: 048
     Dates: start: 201210, end: 20140627

REACTIONS (1)
  - Wound infection [None]

NARRATIVE: CASE EVENT DATE: 20140627
